FAERS Safety Report 10877528 (Version 2)
Quarter: 2015Q1

REPORT INFORMATION
  Report Type: Spontaneous
  Country: US (occurrence: US)
  Receive Date: 20150302
  Receipt Date: 20150303
  Transmission Date: 20150721
  Serious: Yes (Other)
  Sender: FDA-Public Use
  Company Number: US-TEVA-542642USA

PATIENT
  Age: 63 Year
  Sex: Female

DRUGS (1)
  1. COPAXONE [Suspect]
     Active Substance: GLATIRAMER ACETATE
     Indication: MULTIPLE SCLEROSIS
     Dates: start: 20070302

REACTIONS (3)
  - Brain cancer metastatic [Not Recovered/Not Resolved]
  - Malignant melanoma [Unknown]
  - Constipation [Unknown]

NARRATIVE: CASE EVENT DATE: 201501
